FAERS Safety Report 4478287-9 (Version None)
Quarter: 2004Q4

REPORT INFORMATION
  Report Type: 
  Country: None (occurrence: None)
  Receive Date: 20041019
  Receipt Date: 20040622
  Transmission Date: 20050328
  Serious: Yes (Other)
  Sender: FDA-Public Use
  Company Number: US-ROCHE-371874

PATIENT
  Age: 48 Year
  Sex: Male
  Weight: 79.4 kg

DRUGS (2)
  1. PEGASYS [Suspect]
     Indication: DRUG USE FOR UNKNOWN INDICATION
     Route: 058
     Dates: start: 20031015, end: 20040515
  2. COPEGUS [Suspect]
     Indication: DRUG USE FOR UNKNOWN INDICATION
     Route: 048
     Dates: start: 20031015, end: 20040515

REACTIONS (6)
  - ANXIETY [None]
  - CONVULSION [None]
  - MEMORY IMPAIRMENT [None]
  - PANIC ATTACK [None]
  - TREATMENT NONCOMPLIANCE [None]
  - TREMOR [None]
